FAERS Safety Report 11969519 (Version 2)
Quarter: 2016Q1

REPORT INFORMATION
  Report Type: Spontaneous
  Country: CA (occurrence: CA)
  Receive Date: 20160128
  Receipt Date: 20160223
  Transmission Date: 20160526
  Serious: Yes (Other)
  Sender: FDA-Public Use
  Company Number: CA-ACTAVIS-2016-01515

PATIENT
  Age: 16 Year
  Sex: Female

DRUGS (4)
  1. ARIPIPRAZOLE (UNKNOWN) [Suspect]
     Active Substance: ARIPIPRAZOLE
     Indication: PSYCHOTIC DISORDER
     Dosage: 10 MG, DAILY
     Route: 065
  2. RISPERIDONE (UNKNOWN) [Suspect]
     Active Substance: RISPERIDONE
     Indication: PSYCHOTIC DISORDER
     Dosage: 1 MG, DAILY
     Route: 065
  3. ARIPIPRAZOLE (UNKNOWN) [Suspect]
     Active Substance: ARIPIPRAZOLE
     Dosage: 25 MG, DAILY
     Route: 065
  4. RISPERIDONE (UNKNOWN) [Suspect]
     Active Substance: RISPERIDONE
     Dosage: 2 MG, DAILY
     Route: 065

REACTIONS (1)
  - Oculogyric crisis [Recovered/Resolved]
